FAERS Safety Report 16404744 (Version 2)
Quarter: 2019Q2

REPORT INFORMATION
  Report Type: Spontaneous
  Country: US (occurrence: US)
  Receive Date: 20190607
  Receipt Date: 20190614
  Transmission Date: 20190711
  Serious: No
  Sender: FDA-Public Use
  Company Number: US-JNJFOC-20190530051

PATIENT
  Age: 54 Year
  Sex: Male
  Weight: 81.65 kg

DRUGS (3)
  1. SPRAVATO [Suspect]
     Active Substance: ESKETAMINE
     Indication: POST-TRAUMATIC STRESS DISORDER
     Route: 045
     Dates: start: 20190515
  2. SPRAVATO [Suspect]
     Active Substance: ESKETAMINE
     Indication: DEPRESSION
     Route: 045
     Dates: start: 20190515
  3. SPRAVATO [Suspect]
     Active Substance: ESKETAMINE
     Indication: ANXIETY
     Route: 045
     Dates: start: 20190515

REACTIONS (2)
  - Anxiety [Recovered/Resolved]
  - Drug ineffective [Unknown]

NARRATIVE: CASE EVENT DATE: 20190516
